FAERS Safety Report 19008760 (Version 1)
Quarter: 2021Q1

REPORT INFORMATION
  Report Type: Report from Study
  Country: BR (occurrence: BR)
  Receive Date: 20210315
  Receipt Date: 20210315
  Transmission Date: 20210420
  Serious: Yes (Other)
  Sender: FDA-Public Use
  Company Number: NVSC2021BR055461

PATIENT
  Sex: Female

DRUGS (6)
  1. COSENTYX [Suspect]
     Active Substance: SECUKINUMAB
     Dosage: 150 MG, QMO (EVERY 28 DAYS)
     Route: 065
     Dates: start: 20210208
  2. COSENTYX [Suspect]
     Active Substance: SECUKINUMAB
     Dosage: 150 MG, UNKNOWN (5 FIRST DOSES)
     Route: 065
     Dates: start: 20190613
  3. COSENTYX [Suspect]
     Active Substance: SECUKINUMAB
     Indication: ANKYLOSING SPONDYLITIS
     Dosage: 150 MG, UNKNOWN (5 FIRST DOSES)
     Route: 065
     Dates: start: 20190606
  4. COSENTYX [Suspect]
     Active Substance: SECUKINUMAB
     Dosage: 150 MG, QMO (EVERY 28 DAYS)
     Route: 065
  5. COSENTYX [Suspect]
     Active Substance: SECUKINUMAB
     Dosage: 150 MG, UNKNOWN (5 FIRST DOSES)
     Route: 065
     Dates: start: 20190624
  6. COSENTYX [Suspect]
     Active Substance: SECUKINUMAB
     Dosage: 150 MG, UNKNOWN (5 FIRST DOSES)
     Route: 065
     Dates: start: 20190701

REACTIONS (8)
  - Diabetes mellitus [Unknown]
  - Fatigue [Recovered/Resolved]
  - Condition aggravated [Unknown]
  - Spinal disorder [Unknown]
  - Spondylitis [Unknown]
  - Intervertebral disc protrusion [Unknown]
  - Pain [Recovering/Resolving]
  - Decreased immune responsiveness [Recovered/Resolved]
